FAERS Safety Report 4524450-8 (Version None)
Quarter: 2004Q4

REPORT INFORMATION
  Report Type: 
  Country: None (occurrence: None)
  Receive Date: 20041116
  Receipt Date: 20040923
  Transmission Date: 20050328
  Serious: No
  Sender: FDA-Public Use
  Company Number: PHEH2004US01425

PATIENT
  Age: 36 Year
  Sex: Female

DRUGS (8)
  1. GLEEVEC [Suspect]
     Indication: LEUKAEMIA
     Dosage: 400 MG, QD
     Dates: start: 20040126, end: 20040202
  2. VALTREX [Concomitant]
  3. NEURONTIN [Concomitant]
  4. OVRAL (LEVONORGESTREL) [Concomitant]
  5. POTASSIUM (POTASSIUM) [Concomitant]
  6. VINCRISTINE [Concomitant]
  7. PREDNISONE TAB [Concomitant]
  8. DILFLUCAN (FLUCONAZOLE) [Concomitant]

REACTIONS (5)
  - GENERALISED ERYTHEMA [None]
  - PRURITUS [None]
  - RASH GENERALISED [None]
  - RASH PAPULAR [None]
  - TELANGIECTASIA [None]
